FAERS Safety Report 6669689-0 (Version None)
Quarter: 2010Q2

REPORT INFORMATION
  Report Type: 
  Country: None (occurrence: None)
  Receive Date: 20100402
  Receipt Date: 20100323
  Transmission Date: 20101027
  Serious: Yes (Death)
  Sender: FDA-Public Use
  Company Number: WAES 1003USA03977

PATIENT

DRUGS (1)
  1. ZOLINZA [Suspect]
     Dosage: PO
     Route: 048

REACTIONS (1)
  - DEATH [None]
